FAERS Safety Report 5779184-9 (Version None)
Quarter: 2008Q2

REPORT INFORMATION
  Report Type: 
  Country: None (occurrence: None)
  Receive Date: 20080617
  Receipt Date: 20080602
  Transmission Date: 20081010
  Serious: Yes (Other)
  Sender: FDA-Public Use
  Company Number: 2008AL006717

PATIENT
  Age: 29 Year
  Sex: Male

DRUGS (4)
  1. CETIRIZINE HCL [Suspect]
     Indication: DRUG USE FOR UNKNOWN INDICATION
     Dosage: PO
     Route: 048
  2. ALBUTEROL [Concomitant]
  3. VARENICLINE [Concomitant]
  4. COZAAR [Concomitant]

REACTIONS (1)
  - CONVULSION [None]
